FAERS Safety Report 14045466 (Version 2)
Quarter: 2019Q2

REPORT INFORMATION
  Report Type: Spontaneous
  Country: CA (occurrence: CA)
  Receive Date: 20171005
  Receipt Date: 20190611
  Transmission Date: 20190711
  Serious: Yes (Other)
  Sender: FDA-Public Use
  Company Number: CA-CONCORDIA PHARMACEUTICALS INC.-GSH201709-005553

PATIENT
  Sex: Female

DRUGS (8)
  1. SULFASALAZINE. [Concomitant]
     Active Substance: SULFASALAZINE
  2. ORENCIA [Concomitant]
     Active Substance: ABATACEPT
  3. SIMPONI [Concomitant]
     Active Substance: GOLIMUMAB
  4. HYDROXYCHLOROQUINE [Suspect]
     Active Substance: HYDROXYCHLOROQUINE
     Indication: PRODUCT USED FOR UNKNOWN INDICATION
     Route: 048
     Dates: start: 201302, end: 201304
  5. CIMZIA [Concomitant]
     Active Substance: CERTOLIZUMAB PEGOL
  6. ENBREL [Concomitant]
     Active Substance: ETANERCEPT
  7. METHOTREXATE. [Concomitant]
     Active Substance: METHOTREXATE
  8. INFLECTRA [Concomitant]
     Active Substance: INFLIXIMAB-DYYB

REACTIONS (3)
  - Drug intolerance [Unknown]
  - Visual impairment [Unknown]
  - Pulmonary toxicity [Unknown]
